FAERS Safety Report 18277542 (Version 1)
Quarter: 2020Q3

REPORT INFORMATION
  Report Type: Spontaneous
  Country: DE (occurrence: DE)
  Receive Date: 20200917
  Receipt Date: 20200917
  Transmission Date: 20201103
  Serious: Yes (Hospitalization)
  Sender: FDA-Public Use
  Company Number: DE-TEVA-2020-DE-1827768

PATIENT
  Age: 85 Year
  Sex: Female

DRUGS (9)
  1. SERTRALIN [Interacting]
     Active Substance: SERTRALINE HYDROCHLORIDE
     Dosage: 50MG
     Dates: start: 20200308, end: 20200309
  2. VITAMIN D3 [Concomitant]
     Active Substance: CHOLECALCIFEROL
     Dosage: USE FOR A LONG TIME, 400MG
  3. SERTRALIN [Interacting]
     Active Substance: SERTRALINE HYDROCHLORIDE
     Dosage: 25MG
     Dates: start: 20200310
  4. L?THYROXIN [Concomitant]
     Active Substance: LEVOTHYROXINE SODIUM
     Dosage: USE FOR A LONG TIME, 50MCG
  5. CLOPIDOGREL [Suspect]
     Active Substance: CLOPIDOGREL BISULFATE
     Dosage: USE FOR A LONG TIME, 75MG
     Route: 065
  6. CALCIUM [Concomitant]
     Active Substance: CALCIUM
     Dosage: USE FOR A LONG TIME,600MG
  7. METOPROLOL. [Concomitant]
     Active Substance: METOPROLOL
     Dosage: USE FOR A LONG TIME, 95MG
  8. SERTRALIN [Interacting]
     Active Substance: SERTRALINE HYDROCHLORIDE
     Dosage: 25MG
     Dates: start: 20200304, end: 20200307
  9. ALENDRONSAURE [Concomitant]
     Active Substance: ALENDRONIC ACID
     Dosage: USE FOR A LONG TIME, 70MG

REACTIONS (5)
  - Vomiting [Recovered/Resolved]
  - Drug interaction [Unknown]
  - Fall [Recovered/Resolved]
  - Nausea [Recovered/Resolved]
  - Dizziness [Recovered/Resolved]

NARRATIVE: CASE EVENT DATE: 202003
